FAERS Safety Report 18967906 (Version 1)
Quarter: 2021Q1

REPORT INFORMATION
  Report Type: Spontaneous
  Country: US (occurrence: US)
  Receive Date: 20210303
  Receipt Date: 20210303
  Transmission Date: 20210420
  Serious: Yes (Hospitalization)
  Sender: FDA-Public Use
  Company Number: None

PATIENT
  Age: 67 Year
  Sex: Female

DRUGS (19)
  1. ZETIA [Concomitant]
     Active Substance: EZETIMIBE
  2. ESTRADIOL. [Concomitant]
     Active Substance: ESTRADIOL
  3. FUROSEMIDE. [Concomitant]
     Active Substance: FUROSEMIDE
  4. CYCLOSPORINE 100MG [Suspect]
     Active Substance: CYCLOSPORINE
     Route: 048
  5. LISINOPRIL. [Concomitant]
     Active Substance: LISINOPRIL
  6. LEVOTHYROXINE. [Concomitant]
     Active Substance: LEVOTHYROXINE
  7. PREDNISONE. [Concomitant]
     Active Substance: PREDNISONE
  8. GENGRAF [Concomitant]
     Active Substance: CYCLOSPORINE
  9. TRAZODONE [Concomitant]
     Active Substance: TRAZODONE HYDROCHLORIDE
  10. CALCITONIN [Concomitant]
     Active Substance: CALCITONIN
  11. HUMALOG [Concomitant]
     Active Substance: INSULIN LISPRO
  12. ARANESP [Concomitant]
     Active Substance: DARBEPOETIN ALFA
  13. PRAVASTATIN. [Concomitant]
     Active Substance: PRAVASTATIN
  14. MIACALCIN [Concomitant]
     Active Substance: CALCITONIN SALMON
  15. CYCLOSPORINE. [Suspect]
     Active Substance: CYCLOSPORINE
     Indication: RENAL TRANSPLANT
     Route: 048
     Dates: start: 20210125
  16. ACIPHEX [Concomitant]
     Active Substance: RABEPRAZOLE SODIUM
  17. VALTREX [Concomitant]
     Active Substance: VALACYCLOVIR HYDROCHLORIDE
  18. LAMOTRIGINE. [Concomitant]
     Active Substance: LAMOTRIGINE
  19. CIPROFLOXACIN. [Concomitant]
     Active Substance: CIPROFLOXACIN

REACTIONS (1)
  - Myocardial infarction [None]
